FAERS Safety Report 21499021 (Version 1)
Quarter: 2022Q4

REPORT INFORMATION
  Report Type: Spontaneous
  Country: US (occurrence: None)
  Receive Date: 20221022
  Receipt Date: 20221022
  Transmission Date: 20230113
  Serious: Yes (Other)
  Sender: FDA-Public Use
  Company Number: None

PATIENT
  Age: 35 Year
  Sex: Female
  Weight: 57.15 kg

DRUGS (1)
  1. GONAL-F RFF REDI-JECT [Suspect]
     Active Substance: FOLLITROPIN
     Indication: In vitro fertilisation
     Dosage: FREQUENCY : DAILY;?
     Dates: start: 20221020

REACTIONS (4)
  - Product dispensing error [None]
  - Wrong technique in product usage process [None]
  - Incorrect dose administered [None]
  - Syringe issue [None]

NARRATIVE: CASE EVENT DATE: 20221022
